FAERS Safety Report 11096292 (Version 3)
Quarter: 2015Q3

REPORT INFORMATION
  Report Type: Spontaneous
  Country: US (occurrence: None)
  Receive Date: 20150505
  Receipt Date: 20150720
  Transmission Date: 20151125
  Serious: Yes (Death, Hospitalization)
  Sender: FDA-Public Use
  Company Number: 1713747-2015-999140

PATIENT
  Age: 53 Year
  Sex: Female
  Weight: 70.8 kg

DRUGS (20)
  1. OPTIFLUX DIALYZER [Concomitant]
     Active Substance: DEVICE
  2. NATURALYTE [Concomitant]
     Active Substance: ACETIC ACID\SODIUM ACETATE
  3. HYDRALAZINE [Concomitant]
     Active Substance: HYDRALAZINE HYDROCHLORIDE
  4. SALINE [Suspect]
     Active Substance: SODIUM CHLORIDE
     Indication: CHRONIC KIDNEY DISEASE
     Dosage: HEMODIALYSIS
     Route: 010
     Dates: start: 20150417
  5. FMC BLOODLINES [Concomitant]
     Active Substance: DEVICE
  6. AMIODARONE [Concomitant]
     Active Substance: AMIODARONE
  7. WARFARIN [Concomitant]
     Active Substance: WARFARIN
  8. LORTAB [Concomitant]
     Active Substance: ACETAMINOPHEN\HYDROCODONE BITARTRATE
  9. CARVEDILOL. [Concomitant]
     Active Substance: CARVEDILOL
  10. NATURALYTE BICARBONATE [Concomitant]
     Active Substance: SODIUM BICARBONATE
  11. BENADRYL [Concomitant]
     Active Substance: DIPHENHYDRAMINE HYDROCHLORIDE
  12. LASIX [Concomitant]
     Active Substance: FUROSEMIDE
  13. 2008K2 HEMODIALYSIS SYSTEM [Concomitant]
  14. ASPIRIN. [Concomitant]
     Active Substance: ASPIRIN
  15. MIRALAX [Concomitant]
     Active Substance: POLYETHYLENE GLYCOL 3350
  16. POTASSIUM CHLORIDE. [Concomitant]
     Active Substance: POTASSIUM CHLORIDE
  17. GRANUFLO [Concomitant]
     Active Substance: ACETIC ACID\SODIUM ACETATE
  18. NEXIUM [Concomitant]
     Active Substance: ESOMEPRAZOLE MAGNESIUM
  19. PRAVASTATIN [Concomitant]
     Active Substance: PRAVASTATIN\PRAVASTATIN SODIUM
  20. ZOLOFT [Concomitant]
     Active Substance: SERTRALINE HYDROCHLORIDE

REACTIONS (6)
  - Fall [None]
  - Cardiac arrest [None]
  - Acute respiratory failure [None]
  - Loss of consciousness [None]
  - Death [None]
  - Arrhythmia [None]

NARRATIVE: CASE EVENT DATE: 20150417
